FAERS Safety Report 20668350 (Version 1)
Quarter: 2022Q2

REPORT INFORMATION
  Report Type: Spontaneous
  Country: US (occurrence: US)
  Receive Date: 20220404
  Receipt Date: 20220404
  Transmission Date: 20220721
  Serious: No
  Sender: FDA-Public Use
  Company Number: US-JNJFOC-20220348127

PATIENT

DRUGS (2)
  1. ROGAINE [Suspect]
     Active Substance: MINOXIDIL
     Indication: Product used for unknown indication
     Route: 061
  2. NIACINAMIDE [Concomitant]
     Active Substance: NIACINAMIDE
     Indication: Acne
     Route: 061

REACTIONS (1)
  - Contraindicated product administered [Unknown]
